FAERS Safety Report 8900288 (Version 6)
Quarter: 2013Q4

REPORT INFORMATION
  Report Type: Spontaneous
  Country: US (occurrence: US)
  Receive Date: 20121109
  Receipt Date: 20131007
  Transmission Date: 20140711
  Serious: Yes (Hospitalization, Congenital Anomaly, Other)
  Sender: FDA-Public Use
  Company Number: US-JNJFOC-20121102211

PATIENT
  Sex: Male

DRUGS (6)
  1. TOPAMAX [Suspect]
     Indication: FOETAL EXPOSURE DURING PREGNANCY
     Route: 064
     Dates: start: 20080110, end: 20081008
  2. AZITHROMYCIN [Suspect]
     Indication: FOETAL EXPOSURE DURING PREGNANCY
     Route: 064
  3. MEDROL DOSE PACK [Suspect]
     Indication: FOETAL EXPOSURE DURING PREGNANCY
     Route: 064
  4. TYLENOL [Suspect]
     Route: 064
  5. TYLENOL [Suspect]
     Indication: FOETAL EXPOSURE DURING PREGNANCY
     Route: 064
  6. PHENERGAN [Suspect]
     Indication: FOETAL EXPOSURE DURING PREGNANCY
     Route: 064

REACTIONS (9)
  - Chordee [Unknown]
  - Obstruction gastric [Recovering/Resolving]
  - Hypospadias [Recovering/Resolving]
  - Patent ductus arteriosus [Recovering/Resolving]
  - Phimosis [Unknown]
  - Penile torsion [Unknown]
  - Congenital skin dimples [Unknown]
  - Placental transfusion syndrome [Unknown]
  - Small for dates baby [Unknown]
